FAERS Safety Report 16585442 (Version 3)
Quarter: 2019Q3

REPORT INFORMATION
  Report Type: Report from Study
  Country: None (occurrence: US)
  Receive Date: 20190717
  Receipt Date: 20190826
  Transmission Date: 20191004
  Serious: Yes (Other)
  Sender: FDA-Public Use
  Company Number: US-ABBVIE-19K-163-2855617-00

PATIENT
  Age: 75 Year
  Sex: Female
  Weight: 77.18 kg

DRUGS (1)
  1. HUMIRA [Suspect]
     Active Substance: ADALIMUMAB
     Indication: RHEUMATOID ARTHRITIS
     Dosage: CITRATE FREE
     Route: 058
     Dates: start: 200606, end: 2019

REACTIONS (19)
  - Sinusitis [Recovered/Resolved]
  - Middle ear effusion [Not Recovered/Not Resolved]
  - Middle ear effusion [Unknown]
  - Sinusitis [Recovering/Resolving]
  - Sinusitis [Recovered/Resolved]
  - Laryngitis [Recovering/Resolving]
  - Tinnitus [Not Recovered/Not Resolved]
  - Gastrooesophageal reflux disease [Not Recovered/Not Resolved]
  - Staphylococcal infection [Recovering/Resolving]
  - Discomfort [Not Recovered/Not Resolved]
  - Pain [Unknown]
  - Arthropathy [Unknown]
  - Secondary immunodeficiency [Unknown]
  - Sinusitis [Unknown]
  - Infection transmission via personal contact [Unknown]
  - Infection [Unknown]
  - Eustachian tube obstruction [Not Recovered/Not Resolved]
  - Staphylococcal infection [Recovered/Resolved]
  - Hiatus hernia [Not Recovered/Not Resolved]

NARRATIVE: CASE EVENT DATE: 2009
